APPROVED DRUG PRODUCT: TRIMPEX 200
Active Ingredient: TRIMETHOPRIM
Strength: 200MG
Dosage Form/Route: TABLET;ORAL
Application: N017952 | Product #002
Applicant: HOFFMANN LA ROCHE INC
Approved: Nov 9, 1982 | RLD: No | RS: No | Type: DISCN